FAERS Safety Report 16066200 (Version 1)
Quarter: 2019Q2

REPORT INFORMATION
  Report Type: Spontaneous
  Country: US (occurrence: US)
  Receive Date: 20190312
  Receipt Date: 20190312
  Transmission Date: 20190711
  Serious: Yes (Hospitalization)
  Sender: FDA-Public Use
  Company Number: None

PATIENT
  Age: 62 Year
  Sex: Male
  Weight: 81.6 kg

DRUGS (5)
  1. PHENTOLAMIN [Concomitant]
     Dates: start: 20190225, end: 20190225
  2. PAPAVERINE [Concomitant]
     Active Substance: PAPAVERINE
     Dates: start: 20190225, end: 20190225
  3. XIAFLEX 0.58 MG [Concomitant]
     Dates: start: 20190225, end: 20190225
  4. MARCAINE 0.25% [Concomitant]
     Dates: start: 20190225, end: 20190225
  5. NEO-SYNEPHRINE [Suspect]
     Active Substance: PHENYLEPHRINE HYDROCHLORIDE
     Indication: PRODUCT USED FOR UNKNOWN INDICATION
     Dates: start: 20190225, end: 20190225

REACTIONS (5)
  - Chest pain [None]
  - Hyperhidrosis [None]
  - Dyspnoea [None]
  - Hypotension [None]
  - Syncope [None]

NARRATIVE: CASE EVENT DATE: 20190225
